FAERS Safety Report 7669977-5 (Version None)
Quarter: 2011Q3

REPORT INFORMATION
  Report Type: 
  Country: None (occurrence: None)
  Receive Date: 20110808
  Receipt Date: 20110803
  Transmission Date: 20111222
  Serious: Yes (Death, Other)
  Sender: FDA-Public Use
  Company Number: PHHY2011JP70061

PATIENT
  Age: 5 Year
  Sex: Male

DRUGS (9)
  1. ETOPOSIDE [Suspect]
     Indication: BURKITT'S LYMPHOMA STAGE III
  2. EPIRUBICIN [Suspect]
     Indication: BURKITT'S LYMPHOMA STAGE III
  3. METHOTREXATE [Suspect]
     Indication: BURKITT'S LYMPHOMA STAGE III
  4. PREDNISOLONE [Suspect]
     Indication: BURKITT'S LYMPHOMA STAGE III
  5. CYCLOPHOSPHAMIDE [Suspect]
     Indication: BURKITT'S LYMPHOMA STAGE III
  6. ALLOPURINOL [Concomitant]
  7. COTRIM [Concomitant]
  8. VINCRISTINE [Suspect]
     Indication: BURKITT'S LYMPHOMA STAGE III
  9. CYTARABINE [Suspect]
     Indication: BURKITT'S LYMPHOMA STAGE III

REACTIONS (9)
  - DILATATION VENTRICULAR [None]
  - TRICUSPID VALVE INCOMPETENCE [None]
  - PULMONARY HYPERTENSION [None]
  - RIGHT ATRIAL DILATATION [None]
  - HYPOXIA [None]
  - DYSPNOEA [None]
  - RIGHT VENTRICULAR FAILURE [None]
  - PLEURAL EFFUSION [None]
  - PULMONARY VENO-OCCLUSIVE DISEASE [None]
